FAERS Safety Report 9580846 (Version 1)
Quarter: 2013Q4

REPORT INFORMATION
  Report Type: Spontaneous
  Country: US (occurrence: None)
  Receive Date: 20131001
  Receipt Date: 20131001
  Transmission Date: 20140711
  Serious: No
  Sender: FDA-Public Use
  Company Number: None

PATIENT
  Age: 68 Year
  Sex: Female
  Weight: 52.16 kg

DRUGS (1)
  1. PRAVASTATIN SODIUM [Suspect]
     Indication: BLOOD CHOLESTEROL
     Dosage: 1 PILL
     Route: 048
     Dates: start: 20121206, end: 20130908

REACTIONS (14)
  - Headache [None]
  - Chest pain [None]
  - Decreased appetite [None]
  - Thirst [None]
  - Dysgeusia [None]
  - Nausea [None]
  - Oral discomfort [None]
  - Throat irritation [None]
  - Dyspepsia [None]
  - Gastrooesophageal reflux disease [None]
  - Urine output decreased [None]
  - Chromaturia [None]
  - Urine odour abnormal [None]
  - Chest discomfort [None]
